FAERS Safety Report 5777127-5 (Version None)
Quarter: 2008Q2

REPORT INFORMATION
  Report Type: 
  Country: None (occurrence: None)
  Receive Date: 20080618
  Receipt Date: 20080613
  Transmission Date: 20081010
  Serious: Yes (Other)
  Sender: FDA-Public Use
  Company Number: JP-ASTRAZENECA-2008AP04603

PATIENT
  Age: 7 Month
  Sex: Male
  Weight: 7 kg

DRUGS (6)
  1. MARCAINE [Suspect]
     Indication: EPIDURAL ANAESTHESIA
     Route: 008
     Dates: start: 20080226, end: 20080226
  2. SEVOFLURANE [Concomitant]
     Dosage: DOSE UNKNOWN
     Route: 055
     Dates: start: 20080226, end: 20080226
  3. LAUGHING GAS [Concomitant]
     Dosage: DOSE UNKNOWN
     Route: 055
     Dates: start: 20080226, end: 20080226
  4. ATROPINE SULFATE [Concomitant]
     Dosage: DOSE UNKNOWN
     Route: 065
     Dates: start: 20080226, end: 20080226
  5. FAMOTIDINE [Concomitant]
     Dosage: DOSE UNKNOWN
     Route: 065
     Dates: start: 20080226, end: 20080226
  6. MUSCULAX [Concomitant]
     Dosage: DOSE UNKNOWN
     Route: 065
     Dates: start: 20080226, end: 20080226

REACTIONS (1)
  - EXTRASYSTOLES [None]
